FAERS Safety Report 9610607 (Version 2)
Quarter: 2014Q1

REPORT INFORMATION
  Report Type: Spontaneous
  Country: US (occurrence: US)
  Receive Date: 20131009
  Receipt Date: 20140212
  Transmission Date: 20141002
  Serious: Yes (Hospitalization)
  Sender: FDA-Public Use
  Company Number: US-B.I. PHARMACEUTICALS,INC./RIDGEFIELD-2013-BI-31657BP

PATIENT
  Age: 50 Year
  Sex: Male
  Weight: 93 kg

DRUGS (19)
  1. SPIRIVA [Suspect]
     Indication: CHRONIC OBSTRUCTIVE PULMONARY DISEASE
     Dosage: 18 MCG
     Route: 055
     Dates: start: 201304, end: 20130903
  2. ALBUTEROL [Concomitant]
     Dosage: DOSE PER APPLICATION:0.83 % PER NEB
  3. AMLODIPINE [Concomitant]
     Dosage: 10 MG
  4. CARVEDILOL [Concomitant]
     Dosage: 25 MG
  5. CLOPIDOGREL [Concomitant]
     Dosage: 75 MG
  6. GABAPENTIN [Concomitant]
     Dosage: 900 MG
  7. HCTZ [Concomitant]
     Dosage: 25 MG
  8. ISOSORBIDE [Concomitant]
     Dosage: 30 MG
  9. LANTUS SS [Concomitant]
  10. LISINOPRIL [Concomitant]
     Dosage: 40 MG
  11. PERCOCET [Concomitant]
     Dosage: 10-325
  12. NTG [Concomitant]
  13. ONDANSETRON [Concomitant]
  14. PROAIR HFA [Concomitant]
  15. RANITIDINE [Concomitant]
  16. SYMBICORT 160 [Concomitant]
     Dosage: 4 PUF
  17. VICTOZA [Concomitant]
     Dosage: 1.2 MG
  18. VITAMIN B12 FOLIC ACID [Concomitant]
  19. ERGOCALCIFEROL [Concomitant]
     Dosage: DOSE PER APPLICATION:50000 QNK

REACTIONS (1)
  - Transient ischaemic attack [Not Recovered/Not Resolved]
